FAERS Safety Report 5316894-1 (Version None)
Quarter: 2007Q2

REPORT INFORMATION
  Report Type: 
  Country: None (occurrence: None)
  Receive Date: 20070504
  Receipt Date: 20070503
  Transmission Date: 20071010
  Serious: Yes (Hospitalization)
  Sender: FDA-Public Use
  Company Number: FR-GLAXOSMITHKLINE-B0465261A

PATIENT
  Age: 56 Year
  Sex: Male

DRUGS (1)
  1. AUGMENTIN '125' [Suspect]
     Indication: WOUND
     Route: 048
     Dates: start: 20070126, end: 20070204

REACTIONS (4)
  - INFLAMMATION [None]
  - PAIN [None]
  - PYREXIA [None]
  - SERUM SICKNESS [None]
